FAERS Safety Report 9275707 (Version 5)
Quarter: 2013Q4

REPORT INFORMATION
  Report Type: Spontaneous
  Country: US (occurrence: None)
  Receive Date: 20130318
  Receipt Date: 20131023
  Transmission Date: 20140711
  Serious: Yes (Hospitalization, Other)
  Sender: FDA-Public Use
  Company Number: 2012033487

PATIENT
  Sex: Female
  Weight: 83.92 kg

DRUGS (23)
  1. PRIVIGEN (IMMUNE GLOBULIN INTRAVENOUS (HUMAN) 10% LIQUID) [Suspect]
     Indication: IMMUNODEFICIENCY COMMON VARIABLE
     Dosage: 60 G 1X/3 WEEKS (AT MAX RATE OF 250 ML PER HOUR FOR 3 HOURS)
     Route: 042
  2. ACETAMINOPHEN (PARACETAMOL) [Concomitant]
  3. DIPHENHYDRAMINE (DIPHENHYDRAMINE) [Concomitant]
  4. HEPARIN (HEPARIN) [Concomitant]
  5. LIDOCAINE/PRILOCAINE (EMLA) [Concomitant]
  6. SODIUM CHLORIDE [Concomitant]
  7. EPI PEN (EPNIEPHRINE) [Concomitant]
  8. CYMBALTA (DULOXETINE HYDROCHLORIDE) [Concomitant]
  9. DICLOFENAC (DICLOFENAC) [Concomitant]
  10. KLONOPIN (CLONAZEPAM) (TABLETS) [Concomitant]
  11. AXERT (ALMOTRIPTAN MALATE) [Concomitant]
  12. NORVASC (AMLODIPINE) [Concomitant]
  13. ALBUTEROL (SALBUTAMOL) [Concomitant]
  14. DILAUDID (HYDROMORPHONE HYDROCHLORIDE) INJECTION [Concomitant]
  15. AUGMENTIN (AUGMENTIN) [Concomitant]
  16. VITAMIN E (TOCOPHEROL) [Concomitant]
  17. ZIAC (GALENIC /BISOPROLOL/HYDROCHLOROTHIAZIDE/) [Concomitant]
  18. REQUIP (ROPINIROLE HYDROCHLORIDE) [Concomitant]
  19. PLAQUENIL (HYDROXYCHLOROQUINE PHOSPHATE) [Concomitant]
  20. CYANOCOBALAMIN (CYANOCOBALAMIN) [Concomitant]
  21. VITAMIN B6 (PYRIDOXINE HYDROCHLORIDE) [Concomitant]
  22. VITAMIN D3 (COLECALCIFEROL) [Concomitant]
  23. CEFDINIR (CEFDINIR) [Concomitant]

REACTIONS (14)
  - Sinusitis [None]
  - Vaccination complication [None]
  - Migraine [None]
  - Abasia [None]
  - Multiple sclerosis [None]
  - Impaired work ability [None]
  - Influenza [None]
  - Tremor [None]
  - Fatigue [None]
  - Headache [None]
  - Asthenia [None]
  - Infusion related reaction [None]
  - Abasia [None]
  - Pneumonia [None]
